FAERS Safety Report 13646786 (Version 2)
Quarter: 2018Q3

REPORT INFORMATION
  Report Type: Spontaneous
  Country: RU (occurrence: RU)
  Receive Date: 20170613
  Receipt Date: 20180904
  Transmission Date: 20181010
  Serious: Yes (Hospitalization)
  Sender: FDA-Public Use
  Company Number: RU-ASTRAZENECA-2017SE60206

PATIENT
  Age: 67 Year
  Sex: Female
  Weight: 61 kg

DRUGS (9)
  1. METFORMIN [Concomitant]
     Active Substance: METFORMIN HYDROCHLORIDE
  2. BRILINTA [Suspect]
     Active Substance: TICAGRELOR
     Indication: STENT PLACEMENT
     Route: 048
     Dates: start: 201611, end: 201808
  3. OMEZ [Concomitant]
     Active Substance: OMEPRAZOLE
  4. BRILINTA [Suspect]
     Active Substance: TICAGRELOR
     Indication: ANGINA UNSTABLE
     Route: 048
     Dates: start: 201611, end: 201808
  5. ENALAPRIL [Concomitant]
     Active Substance: ENALAPRIL
  6. ATORVASTATIN [Concomitant]
     Active Substance: ATORVASTATIN
  7. BISOPROLOL [Concomitant]
     Active Substance: BISOPROLOL
  8. INDAPAMIDE. [Concomitant]
     Active Substance: INDAPAMIDE
  9. ACECARDOL [Concomitant]
     Active Substance: ASPIRIN

REACTIONS (4)
  - Product use issue [Unknown]
  - Dyspepsia [Not Recovered/Not Resolved]
  - Myocardial infarction [Unknown]
  - Off label use [Unknown]

NARRATIVE: CASE EVENT DATE: 201611
